FAERS Safety Report 18952950 (Version 1)
Quarter: 2021Q1

REPORT INFORMATION
  Report Type: Spontaneous
  Country: US (occurrence: US)
  Receive Date: 20210227
  Receipt Date: 20210227
  Transmission Date: 20210420
  Serious: Yes (Disabling)
  Sender: FDA-Public Use
  Company Number: None

PATIENT
  Age: 40 Year
  Sex: Male
  Weight: 44.55 kg

DRUGS (5)
  1. VITAMIN B12 [Concomitant]
     Active Substance: CYANOCOBALAMIN
  2. PLANT?BASED OMEGA?3 [Concomitant]
  3. FINASTERIDE. [Suspect]
     Active Substance: FINASTERIDE
     Indication: ALOPECIA
     Dosage: ?          QUANTITY:0.5 TABLET(S);?
     Route: 048
     Dates: start: 20040101, end: 20040630
  4. AZELASTINE NASAL SPRAY [Concomitant]
     Active Substance: AZELASTINE
  5. VITAMIN D [Concomitant]
     Active Substance: VITAMIN D NOS

REACTIONS (13)
  - Abdominal distension [None]
  - Insomnia [None]
  - Cerebral disorder [None]
  - Reduced facial expression [None]
  - Poverty of thought content [None]
  - Erectile dysfunction [None]
  - Emotional disorder [None]
  - Asthenia [None]
  - Penile size reduced [None]
  - Muscle atrophy [None]
  - Social problem [None]
  - Quality of life decreased [None]
  - Anxiety [None]

NARRATIVE: CASE EVENT DATE: 20040701
